FAERS Safety Report 11540077 (Version 2)
Quarter: 2015Q3

REPORT INFORMATION
  Report Type: Spontaneous
  Country: US (occurrence: US)
  Receive Date: 20150923
  Receipt Date: 20150924
  Transmission Date: 20151125
  Serious: Yes (Hospitalization, Other)
  Sender: FDA-Public Use
  Company Number: US-HORIZON-BUP-0036-2015

PATIENT
  Age: 17 Year
  Sex: Female

DRUGS (3)
  1. BUPHENYL [Suspect]
     Active Substance: SODIUM PHENYLBUTYRATE
     Indication: ORNITHINE TRANSCARBAMOYLASE DEFICIENCY
  2. MIRILAX [Concomitant]
  3. ARGININE [Concomitant]
     Active Substance: ARGININE

REACTIONS (2)
  - Ammonia increased [Recovered/Resolved]
  - Heat stroke [Unknown]

NARRATIVE: CASE EVENT DATE: 20150903
